FAERS Safety Report 23764120 (Version 2)
Quarter: 2024Q2

REPORT INFORMATION
  Report Type: Report from Study
  Country: DE (occurrence: DE)
  Receive Date: 20240419
  Receipt Date: 20240510
  Transmission Date: 20240715
  Serious: Yes (Death, Hospitalization, Other)
  Sender: FDA-Public Use
  Company Number: DE-ABBVIE-5726459

PATIENT
  Age: 75 Year
  Sex: Male

DRUGS (2)
  1. CARBIDOPA\LEVODOPA [Suspect]
     Active Substance: CARBIDOPA\LEVODOPA
     Indication: Parkinson^s disease
     Dosage: MD 8.0 ML; CRD 2.5 ML/H; ED 1.3 ML
     Route: 050
     Dates: start: 20210511
  2. CARBIDOPA\LEVODOPA [Suspect]
     Active Substance: CARBIDOPA\LEVODOPA

REACTIONS (5)
  - Brain oedema [Fatal]
  - Volvulus [Unknown]
  - Aspiration [Unknown]
  - Ileus [Unknown]
  - Endocarditis [Unknown]

NARRATIVE: CASE EVENT DATE: 20220501
